FAERS Safety Report 13365250 (Version 1)
Quarter: 2017Q1

REPORT INFORMATION
  Report Type: Spontaneous
  Country: US (occurrence: US)
  Receive Date: 20170323
  Receipt Date: 20170323
  Transmission Date: 20170429
  Serious: No
  Sender: FDA-Public Use
  Company Number: US-ALLERGAN-2016-002793

PATIENT
  Age: 61 Year
  Sex: Female
  Weight: 57.14 kg

DRUGS (2)
  1. ESTRACE [Suspect]
     Active Substance: ESTRADIOL
     Dosage: THREE TIMES A WEEK (MON/WED/FRI)
     Route: 066
     Dates: start: 201611
  2. AMOXICILLIN. [Concomitant]
     Active Substance: AMOXICILLIN
     Dosage: UNK, UNKNOWN
     Route: 065

REACTIONS (5)
  - Wrong technique in product usage process [Unknown]
  - Fungal infection [Not Recovered/Not Resolved]
  - Vulvovaginal discomfort [Not Recovered/Not Resolved]
  - Rash [Not Recovered/Not Resolved]
  - Dermatitis contact [Not Recovered/Not Resolved]

NARRATIVE: CASE EVENT DATE: 201611
